FAERS Safety Report 6702386 (Version 2)
Quarter: 2020Q3

REPORT INFORMATION
  Report Type: Report from Study
  Country: US (occurrence: US)
  Receive Date: 20080717
  Receipt Date: 20080812
  Transmission Date: 20201104
  Serious: Yes (Death, Hospitalization, Other)
  Sender: FDA-Public Use
  Company Number: US-ROCHE-574428

PATIENT
  Age: 86 Year
  Sex: Male

DRUGS (2)
  1. UNSPECIFIED INGREDIENT [Concomitant]
     Active Substance: UNSPECIFIED INGREDIENT
  2. IBANDRONIC ACID. [Suspect]
     Active Substance: IBANDRONIC ACID
     Indication: OSTEOPOROSIS
     Route: 065

REACTIONS (4)
  - Myocardial infarction [Unknown]
  - Cardiac disorder [Fatal]
  - Gastrointestinal haemorrhage [Recovered/Resolved]
  - Staphylococcal infection [Not Recovered/Not Resolved]

NARRATIVE: CASE EVENT DATE: 20071117
